FAERS Safety Report 6406186-1 (Version None)
Quarter: 2009Q4

REPORT INFORMATION
  Report Type: 
  Country: None (occurrence: None)
  Receive Date: 20091014
  Receipt Date: 20090930
  Transmission Date: 20100525
  Serious: Yes (Death)
  Sender: FDA-Public Use
  Company Number: 2009AC000032

PATIENT
  Age: 79 Year
  Sex: Male
  Weight: 73.4827 kg

DRUGS (44)
  1. DIGOXIN [Suspect]
     Indication: CARDIAC FAILURE CONGESTIVE
     Dosage: 0.125 MG;QD; PO
     Route: 048
     Dates: start: 20060131, end: 20071102
  2. DIGOXIN [Suspect]
     Dosage: 0.125 MG;QOD; PO
     Route: 048
  3. COREG [Concomitant]
  4. AMIODERONE [Concomitant]
  5. ZOCOR [Concomitant]
  6. NIASPAN [Concomitant]
  7. LEXAPRO [Concomitant]
  8. DIOVAN [Concomitant]
  9. GLIZIPIDE [Concomitant]
  10. PRILOSEC [Concomitant]
  11. FLOMAX [Concomitant]
  12. LASIX [Concomitant]
  13. ASPIRIN [Concomitant]
  14. MULTIVITAMIN [Concomitant]
  15. DETROL [Concomitant]
  16. OXYGEN [Concomitant]
  17. KLOR-CON [Concomitant]
  18. GLIPIZIDE [Concomitant]
  19. SIMVASTATIN [Concomitant]
  20. PACERONE [Concomitant]
  21. CELEXA [Concomitant]
  22. NORVASC [Concomitant]
  23. ZELNORM [Concomitant]
  24. GLYCOLAX [Concomitant]
  25. NITROGLYCERIN [Concomitant]
  26. COUMADIN [Concomitant]
  27. ATACAND [Concomitant]
  28. TETRACYCLINE [Concomitant]
  29. HYDROCODONE/APA [Concomitant]
  30. TEMAZEPAM [Concomitant]
  31. ADVAIR DISKUS 100/50 [Concomitant]
  32. PROTONIX [Concomitant]
  33. CITALOPRAM HYDROBROMIDE [Concomitant]
  34. CEPHALEXIN [Concomitant]
  35. CLARITIN [Concomitant]
  36. CHERATUSSIN [Concomitant]
  37. DETROL [Concomitant]
  38. WARFARIN SODIUM [Concomitant]
  39. ZOLPIDEM [Concomitant]
  40. AVAPRO [Concomitant]
  41. VALSARTAN [Concomitant]
  42. CARVEDILOL [Concomitant]
  43. POTASSIUM CHLORIDE [Concomitant]
  44. NIACIN [Concomitant]

REACTIONS (88)
  - ABASIA [None]
  - ANAEMIA [None]
  - ANHEDONIA [None]
  - AORTIC ANEURYSM [None]
  - ARTHRALGIA [None]
  - ARTHRITIS [None]
  - ATRIOVENTRICULAR BLOCK [None]
  - ATRIOVENTRICULAR BLOCK COMPLETE [None]
  - AZOTAEMIA [None]
  - BALANCE DISORDER [None]
  - BENIGN PROSTATIC HYPERPLASIA [None]
  - BLINDNESS UNILATERAL [None]
  - BLOOD GLUCOSE INCREASED [None]
  - BRONCHITIS [None]
  - BUNDLE BRANCH BLOCK RIGHT [None]
  - CARDIAC ARREST [None]
  - CARDIAC FAILURE CONGESTIVE [None]
  - CARDIAC MURMUR [None]
  - CARDIOACTIVE DRUG LEVEL INCREASED [None]
  - CARDIOMEGALY [None]
  - CAROTID ARTERY OCCLUSION [None]
  - CAROTID BRUIT [None]
  - CEREBRAL INFARCTION [None]
  - CEREBROVASCULAR ACCIDENT [None]
  - CONDUCTION DISORDER [None]
  - CONFUSIONAL STATE [None]
  - CONSTIPATION [None]
  - CONTUSION [None]
  - CORONARY ARTERY DISEASE [None]
  - DEAFNESS [None]
  - DELIRIUM [None]
  - DEPRESSION [None]
  - DIABETES MELLITUS [None]
  - DIASTOLIC DYSFUNCTION [None]
  - DISORIENTATION [None]
  - DIVERTICULUM [None]
  - DIZZINESS [None]
  - DYSPHAGIA [None]
  - EAR DISCOMFORT [None]
  - ECONOMIC PROBLEM [None]
  - ELECTROCARDIOGRAM ST-T CHANGE [None]
  - EXCORIATION [None]
  - EXPOSURE TO CHEMICAL POLLUTION [None]
  - FALL [None]
  - FEELING ABNORMAL [None]
  - FEELING COLD [None]
  - GASTRITIS [None]
  - GASTROOESOPHAGEAL REFLUX DISEASE [None]
  - HEADACHE [None]
  - HYPOKALAEMIA [None]
  - HYPOPHAGIA [None]
  - HYPOTENSION [None]
  - LOBAR PNEUMONIA [None]
  - MENTAL DISORDER [None]
  - MENTAL STATUS CHANGES [None]
  - MICTURITION URGENCY [None]
  - MITRAL VALVE INCOMPETENCE [None]
  - MULTIPLE INJURIES [None]
  - MUSCULAR WEAKNESS [None]
  - MUSCULOSKELETAL PAIN [None]
  - MYOCARDIAL INFARCTION [None]
  - MYOCARDIAL ISCHAEMIA [None]
  - NECK PAIN [None]
  - NOCTURIA [None]
  - OESOPHAGITIS [None]
  - PAIN [None]
  - PAIN IN EXTREMITY [None]
  - PERIDIVERTICULITIS [None]
  - PLATELET COUNT DECREASED [None]
  - PLEURAL EFFUSION [None]
  - PNEUMONIA [None]
  - POLLAKIURIA [None]
  - RENAL FAILURE [None]
  - RENAL FAILURE CHRONIC [None]
  - SINUS BRADYCARDIA [None]
  - SINUSITIS [None]
  - TEMPERATURE INTOLERANCE [None]
  - THERAPEUTIC AGENT TOXICITY [None]
  - TRANSAMINASES INCREASED [None]
  - URINARY TRACT INFECTION [None]
  - VASCULAR CALCIFICATION [None]
  - VENTRICULAR HYPOKINESIA [None]
  - VERTIGO [None]
  - VISUAL ACUITY REDUCED [None]
  - VOMITING [None]
  - WEIGHT FLUCTUATION [None]
  - WEIGHT INCREASED [None]
  - WRIST FRACTURE [None]
